FAERS Safety Report 6878940-3 (Version None)
Quarter: 2010Q3

REPORT INFORMATION
  Report Type: 
  Country: None (occurrence: None)
  Receive Date: 20100728
  Receipt Date: 20100624
  Transmission Date: 20110219
  Serious: No
  Sender: FDA-Public Use
  Company Number: US-BAYER-201017493BCC

PATIENT
  Sex: Female
  Weight: 48 kg

DRUGS (1)
  1. ALEVE (CAPLET) [Suspect]
     Indication: PRODUCT USED FOR UNKNOWN INDICATION
     Dosage: TOTAL DAILY DOSE: 220 MG  UNIT DOSE: 220 MG
     Route: 065
     Dates: start: 20100101, end: 20100101

REACTIONS (2)
  - HYPERSENSITIVITY [None]
  - RASH GENERALISED [None]
